FAERS Safety Report 6166391-9 (Version None)
Quarter: 2009Q2

REPORT INFORMATION
  Report Type: 
  Country: None (occurrence: None)
  Receive Date: 20090422
  Receipt Date: 20090422
  Transmission Date: 20091009
  Serious: Yes (Other)
  Sender: FDA-Public Use
  Company Number: None

PATIENT
  Sex: Female
  Weight: 63.18 kg

DRUGS (8)
  1. LISINOPRIL [Suspect]
     Dosage: 10MG TABLET 10 MG QD ORAL
     Route: 048
     Dates: start: 20080715, end: 20090421
  2. COENZYME Q10 [Concomitant]
  3. FOLIC ACID [Concomitant]
  4. LOVOTHYROXINE SODIUM [Concomitant]
  5. MULTIVITAMIN THERAPEUTIC (THERAPEUTIC MULTIVITIMINS) [Concomitant]
  6. PHENERGAN WITH CODEINE (PROMETHAZINE HCL WITH CODEINE) [Concomitant]
  7. PYRIDOXINE HCL [Concomitant]
  8. SIMVASTATIN [Concomitant]

REACTIONS (1)
  - COUGH [None]
